FAERS Safety Report 16704190 (Version 3)
Quarter: 2021Q1

REPORT INFORMATION
  Report Type: Report from Study
  Country: US (occurrence: US)
  Receive Date: 20190814
  Receipt Date: 20210224
  Transmission Date: 20210419
  Serious: Yes (Life-Threatening, Hospitalization)
  Sender: FDA-Public Use
  Company Number: US-GILEAD-2018-0351520

PATIENT
  Age: 74 Year
  Sex: Female
  Weight: 70.8 kg

DRUGS (41)
  1. IMODIUM [Concomitant]
     Active Substance: LOPERAMIDE HYDROCHLORIDE
  2. VITAMIN K [Concomitant]
     Active Substance: PHYTONADIONE
  3. COENZYME Q10 [Concomitant]
     Active Substance: DIETARY SUPPLEMENT\UBIDECARENONE
     Dosage: 100,MG,DAILY
     Route: 048
     Dates: start: 20180803
  4. PEPCID [Concomitant]
     Active Substance: FAMOTIDINE
     Dosage: 20,MG,DAILY
     Route: 048
     Dates: start: 20150301, end: 20180718
  5. CYANOCOBALAMIN. [Concomitant]
     Active Substance: CYANOCOBALAMIN
     Dosage: 1000,UG,DAILY
     Route: 048
     Dates: start: 20180803
  6. CYCLOPHOSPHAMIDE. [Suspect]
     Active Substance: CYCLOPHOSPHAMIDE
     Dosage: 940
     Route: 042
     Dates: start: 20180715, end: 20180715
  7. DECADRON [Concomitant]
     Active Substance: DEXAMETHASONE
  8. PERIDEX [Concomitant]
     Active Substance: CHLORHEXIDINE GLUCONATE
  9. ZOFRAN [Concomitant]
     Active Substance: ONDANSETRON HYDROCHLORIDE
  10. CRYOPRECIPITATE [Concomitant]
     Active Substance: CRYOPRECIPITATED ANTIHEMOPHILIC FACTOR (HUMAN)
  11. ATORVASTATIN [Concomitant]
     Active Substance: ATORVASTATIN
     Dosage: 40,MG,DAILY
     Route: 048
     Dates: start: 20150301, end: 20180718
  12. KEPPRA [Concomitant]
     Active Substance: LEVETIRACETAM
     Dosage: 500,MG,TWICE DAILY
     Route: 048
     Dates: start: 20180802, end: 20180817
  13. CYCLOPHOSPHAMIDE. [Suspect]
     Active Substance: CYCLOPHOSPHAMIDE
     Indication: BONE MARROW CONDITIONING REGIMEN
     Dosage: 940
     Route: 042
     Dates: start: 20180713, end: 20180713
  14. SYNTHROID [Concomitant]
     Active Substance: LEVOTHYROXINE SODIUM
     Dosage: 50,UG,DAILY
     Route: 048
     Dates: start: 20130101
  15. COENZYME Q10 [Concomitant]
     Active Substance: DIETARY SUPPLEMENT\UBIDECARENONE
     Dosage: 100,MG,DAILY
     Route: 048
     Dates: start: 20150301, end: 20180718
  16. ZANTAC [Concomitant]
     Active Substance: RANITIDINE HYDROCHLORIDE
     Dosage: 150,MG,TWICE DAILY
     Route: 048
     Dates: start: 20180718, end: 20181003
  17. COLACE [Concomitant]
     Active Substance: DOCUSATE SODIUM
     Dosage: 100,MG,DAILY
     Route: 048
     Dates: start: 20180803
  18. ASPIRIN [ACETYLSALICYLIC ACID] [Concomitant]
     Active Substance: ASPIRIN
     Dosage: 81,MG,DAILY
     Route: 048
     Dates: start: 20180301, end: 20180718
  19. TENORMIN [Concomitant]
     Active Substance: ATENOLOL
     Dosage: 12.5,MG,TWICE DAILY
     Route: 048
     Dates: start: 20150301
  20. SENOKOT [Concomitant]
     Active Substance: SENNOSIDES
     Dosage: 8.6,MG,TWICE DAILY
     Route: 048
     Dates: start: 20180802
  21. METOPROLOL TARTRATE. [Concomitant]
     Active Substance: METOPROLOL TARTRATE
     Dosage: 25,MG,TWICE DAILY
     Route: 048
     Dates: start: 20180718, end: 20180722
  22. NYSTATIN. [Concomitant]
     Active Substance: NYSTATIN
  23. AMIODARONE [Concomitant]
     Active Substance: AMIODARONE
  24. COLACE [Concomitant]
     Active Substance: DOCUSATE SODIUM
     Dosage: 100,MG,DAILY
     Route: 048
     Dates: start: 20160101, end: 20180718
  25. CYANOCOBALAMIN. [Concomitant]
     Active Substance: CYANOCOBALAMIN
     Dosage: 1000,UG,DAILY
     Route: 048
     Dates: start: 20160101, end: 20180718
  26. ACETAMINOPHEN. [Concomitant]
     Active Substance: ACETAMINOPHEN
     Dosage: 650,OTHER,TWICE DAILY
     Route: 048
     Dates: start: 20180718, end: 20180718
  27. PERIDEX [CHLORHEXIDINE GLUCONATE] [Concomitant]
     Dosage: 15,ML,THREE TIMES DAILY
     Route: 050
     Dates: start: 20180718, end: 20180802
  28. AXICABTAGENE CILOLEUCEL [Suspect]
     Active Substance: AXICABTAGENE CILOLEUCEL
     Indication: HIGH-GRADE B-CELL LYMPHOMA
     Dosage: 68 ONCE
     Route: 042
     Dates: start: 20180718, end: 20180718
  29. FLUDARABINE [Suspect]
     Active Substance: FLUDARABINE PHOSPHATE
     Dosage: 38
     Route: 042
     Dates: start: 20180715, end: 20180715
  30. ZYLOPRIM [Concomitant]
     Active Substance: ALLOPURINOL
  31. PEPCID [Concomitant]
     Active Substance: FAMOTIDINE
  32. OMNIPAQUE [Concomitant]
     Active Substance: IOHEXOL
  33. KEPPRA [Concomitant]
     Active Substance: LEVETIRACETAM
     Indication: PROPHYLAXIS
     Dosage: 500,MG,TWICE DAILY
     Route: 048
     Dates: start: 20180718, end: 20180729
  34. BENADRYL [Concomitant]
     Active Substance: DIPHENHYDRAMINE HYDROCHLORIDE
     Dosage: 25,MG,ONCE
     Route: 042
     Dates: start: 20180727, end: 20180727
  35. CYCLOPHOSPHAMIDE. [Suspect]
     Active Substance: CYCLOPHOSPHAMIDE
     Dosage: 940
     Route: 042
     Dates: start: 20180714, end: 20180714
  36. FLUDARABINE [Suspect]
     Active Substance: FLUDARABINE PHOSPHATE
     Indication: BONE MARROW CONDITIONING REGIMEN
     Dosage: 38
     Route: 042
     Dates: start: 20180713, end: 20180713
  37. FLUDARABINE [Suspect]
     Active Substance: FLUDARABINE PHOSPHATE
     Dosage: 38
     Route: 042
     Dates: start: 20180714, end: 20180714
  38. ROXICODONE [Concomitant]
     Active Substance: OXYCODONE HYDROCHLORIDE
  39. ALLOPURINOL. [Concomitant]
     Active Substance: ALLOPURINOL
     Dosage: 300,MG,ONCE
     Route: 048
     Dates: start: 20180718, end: 20180730
  40. BENADRYL [Concomitant]
     Active Substance: DIPHENHYDRAMINE HYDROCHLORIDE
     Dosage: 25,MG,ONCE
     Route: 048
     Dates: start: 20180718, end: 20180718
  41. SENOKOT [Concomitant]
     Active Substance: SENNOSIDES
     Dosage: 17.2,MG,AS NECESSARY
     Route: 048
     Dates: start: 20180718, end: 20180801

REACTIONS (5)
  - Tachypnoea [Recovered/Resolved]
  - Sinus tachycardia [Recovered/Resolved]
  - Cytokine release syndrome [Recovered/Resolved]
  - Somnolence [Recovered/Resolved]
  - Acute respiratory failure [Recovered/Resolved]

NARRATIVE: CASE EVENT DATE: 20180719
